FAERS Safety Report 4633702-2 (Version None)
Quarter: 2005Q2

REPORT INFORMATION
  Report Type: 
  Country: None (occurrence: None)
  Receive Date: 20050331
  Receipt Date: 20050110
  Transmission Date: 20051028
  Serious: Yes (Other)
  Sender: FDA-Public Use
  Company Number: 200510146BCC

PATIENT
  Age: 65 Year
  Sex: Male

DRUGS (2)
  1. ALEVE [Suspect]
     Indication: HEADACHE
     Dosage: ORAL
     Route: 048
     Dates: start: 19970101
  2. ALEVE [Suspect]
     Indication: PAIN
     Dosage: ORAL
     Route: 048
     Dates: start: 19970101

REACTIONS (2)
  - GASTRIC HAEMORRHAGE [None]
  - GASTRIC ULCER [None]
